FAERS Safety Report 10573362 (Version 1)
Quarter: 2014Q4

REPORT INFORMATION
  Report Type: Spontaneous
  Country: US (occurrence: None)
  Receive Date: 20141030
  Receipt Date: 20141030
  Transmission Date: 20150529
  Serious: Yes (Other)
  Sender: FDA-Public Use
  Company Number: PHEH2013US026473

PATIENT
  Sex: Female

DRUGS (1)
  1. VIVELLE [Suspect]
     Active Substance: ESTRADIOL
     Dosage: UNK UKN, UNK

REACTIONS (1)
  - Breast cancer [None]
